FAERS Safety Report 13962383 (Version 2)
Quarter: 2017Q4

REPORT INFORMATION
  Report Type: Spontaneous
  Country: GB (occurrence: GB)
  Receive Date: 20170913
  Receipt Date: 20171019
  Transmission Date: 20180320
  Serious: Yes (Hospitalization)
  Sender: FDA-Public Use
  Company Number: GB-MYLANLABS-2017M1056326

PATIENT
  Age: 27 Year
  Sex: Male

DRUGS (7)
  1. CLOZARIL [Suspect]
     Active Substance: CLOZAPINE
     Dosage: UNK
     Route: 048
  2. CLOZARIL [Suspect]
     Active Substance: CLOZAPINE
     Dosage: 325 MG, PM
     Route: 048
     Dates: start: 20170908
  3. CLOZARIL [Suspect]
     Active Substance: CLOZAPINE
     Dosage: 100 MG, AM
     Route: 048
     Dates: start: 20170908
  4. CLOZARIL [Suspect]
     Active Substance: CLOZAPINE
     Dosage: UNK
     Route: 048
     Dates: start: 20140425
  5. VALPROIC ACID. [Concomitant]
     Active Substance: VALPROIC ACID
     Indication: AFFECTIVE DISORDER
     Dosage: 2.5 MG, PM
     Route: 048
  6. CLOZARIL [Suspect]
     Active Substance: CLOZAPINE
     Indication: SCHIZOPHRENIA
     Dosage: UNK
     Route: 048
     Dates: start: 2011
  7. LAMOTRIGINE. [Concomitant]
     Active Substance: LAMOTRIGINE
     Indication: AFFECTIVE DISORDER
     Dosage: 100 MG, PM
     Route: 048

REACTIONS (4)
  - Schizophrenia [Unknown]
  - Treatment noncompliance [Recovering/Resolving]
  - Therapy cessation [Recovering/Resolving]
  - Drug dose omission [Recovered/Resolved]

NARRATIVE: CASE EVENT DATE: 2017
